FAERS Safety Report 23792230 (Version 2)
Quarter: 2024Q3

REPORT INFORMATION
  Report Type: Report from Study
  Country: US (occurrence: US)
  Receive Date: 20240429
  Receipt Date: 20240904
  Transmission Date: 20241017
  Serious: Yes (Hospitalization, Other)
  Sender: JOHNSON AND JOHNSON
  Company Number: US-JNJFOC-20240458439

PATIENT
  Age: 54 Year
  Sex: Female

DRUGS (4)
  1. SPRAVATO [Suspect]
     Active Substance: ESKETAMINE
     Indication: Depression
     Dosage: ^^84 MG, 18 TOTAL DOSES^^
     Dates: start: 20231211, end: 20240419
  2. SPRAVATO [Suspect]
     Active Substance: ESKETAMINE
     Dosage: ^84 MG, 1 TOTAL DOSE ^
     Dates: start: 20240702, end: 20240702
  3. SPRAVATO [Suspect]
     Active Substance: ESKETAMINE
     Dosage: DROPPED THE DOSE : DECREASED FROM 3 TO 2 TREATMENTS, ^1 TOTAL DOSE^
     Dates: start: 2024
  4. SPRAVATO [Suspect]
     Active Substance: ESKETAMINE
     Dosage: ^1 TOTAL DOSE^
     Dates: start: 20240806, end: 20240806

REACTIONS (12)
  - Sepsis [Recovering/Resolving]
  - Clostridium difficile infection [Unknown]
  - Kidney infection [Recovering/Resolving]
  - Nephrolithiasis [Recovering/Resolving]
  - Memory impairment [Unknown]
  - Product dose omission issue [Unknown]
  - SARS-CoV-2 test positive [Not Recovered/Not Resolved]
  - Sinusitis [Unknown]
  - Adverse drug reaction [Unknown]
  - Tooth fracture [Unknown]
  - Off label use [Unknown]
  - Agitation [Unknown]

NARRATIVE: CASE EVENT DATE: 20240101
